FAERS Safety Report 5244028-0 (Version None)
Quarter: 2007Q1

REPORT INFORMATION
  Report Type: 
  Country: None (occurrence: None)
  Receive Date: 20070215
  Receipt Date: 20070207
  Transmission Date: 20070707
  Serious: Yes (Death, Hospitalization, Other)
  Sender: FDA-Public Use
  Company Number: TCI2006A05470

PATIENT
  Age: 86 Year
  Sex: Male

DRUGS (3)
  1. LEUPROLIDE ACETATE [Suspect]
     Indication: PROSTATE CANCER STAGE IV
     Dosage: 11.25 MG (11.25MG, 1 IN 12 WK); SUBCUTANEOUS
     Route: 058
     Dates: start: 20060707, end: 20060707
  2. CASODEX [Concomitant]
  3. HARNAL D (TAMSULOSIN HYDROCHLORIDE) (TABLETS) [Concomitant]

REACTIONS (6)
  - CEREBRAL HAEMORRHAGE [None]
  - GRANULOMA [None]
  - HERPES ZOSTER [None]
  - HOT FLUSH [None]
  - INJECTION SITE INDURATION [None]
  - INJECTION SITE NODULE [None]
